FAERS Safety Report 8248878-8 (Version None)
Quarter: 2012Q2

REPORT INFORMATION
  Report Type: 
  Country: None (occurrence: None)
  Receive Date: 20120401
  Receipt Date: 20120320
  Transmission Date: 20120825
  Serious: Yes (Hospitalization)
  Sender: FDA-Public Use
  Company Number: US-ELI_LILLY_AND_COMPANY-US201203006414

PATIENT
  Sex: Female

DRUGS (3)
  1. ZYPREXA [Suspect]
     Dosage: 25 MG, QD
  2. VENLAFAXINE HCL [Concomitant]
  3. ZYPREXA [Suspect]
     Dosage: 20 MG, QD

REACTIONS (2)
  - MANIA [None]
  - OVERDOSE [None]
